FAERS Safety Report 4606644-6 (Version None)
Quarter: 2005Q2

REPORT INFORMATION
  Report Type: 
  Country: None (occurrence: None)
  Receive Date: 20050223
  Receipt Date: 20040312
  Transmission Date: 20051028
  Serious: Yes (Hospitalization, Other)
  Sender: FDA-Public Use
  Company Number: WAES 0403USA01326

PATIENT
  Age: 68 Year
  Sex: Male

DRUGS (8)
  1. ZOCOR [Suspect]
     Indication: CORONARY ARTERY DISEASE
     Dosage: 40 MG/DAILY/PO;  20 MG/DAILY/PO
     Route: 048
     Dates: start: 20040303, end: 20040310
  2. ZOCOR [Suspect]
     Indication: LIPIDS INCREASED
     Dosage: 40 MG/DAILY/PO;  20 MG/DAILY/PO
     Route: 048
     Dates: start: 20040303, end: 20040310
  3. ZOCOR [Suspect]
     Indication: CORONARY ARTERY DISEASE
     Dosage: 40 MG/DAILY/PO;  20 MG/DAILY/PO
     Route: 048
     Dates: start: 20010301
  4. ZOCOR [Suspect]
     Indication: LIPIDS INCREASED
     Dosage: 40 MG/DAILY/PO;  20 MG/DAILY/PO
     Route: 048
     Dates: start: 20010301
  5. LASIX [Concomitant]
  6. SYNTHROID [Concomitant]
  7. TENORMIN [Concomitant]
  8. XANAX [Concomitant]

REACTIONS (1)
  - PANCREATITIS [None]
